FAERS Safety Report 10629347 (Version 1)
Quarter: 2014Q4

REPORT INFORMATION
  Report Type: Spontaneous
  Country: US (occurrence: US)
  Receive Date: 20141205
  Receipt Date: 20141205
  Transmission Date: 20150529
  Serious: Yes (Other)
  Sender: FDA-Public Use
  Company Number: US-BRISTOL-MYERS SQUIBB COMPANY-21166103

PATIENT
  Age: 85 Year
  Sex: Male
  Weight: 85.71 kg

DRUGS (1)
  1. SPRYCEL [Suspect]
     Active Substance: DASATINIB
     Indication: CHRONIC MYELOID LEUKAEMIA
     Dates: start: 20140620

REACTIONS (3)
  - Pain [Recovered/Resolved]
  - Diarrhoea [Unknown]
  - Hypoaesthesia [Recovered/Resolved]
